FAERS Safety Report 21370499 (Version 1)
Quarter: 2022Q3

REPORT INFORMATION
  Report Type: Spontaneous
  Country: BR (occurrence: BR)
  Receive Date: 20220923
  Receipt Date: 20220923
  Transmission Date: 20221026
  Serious: Yes (Other)
  Sender: FDA-Public Use
  Company Number: BR-009507513-2208BRA008547

PATIENT
  Age: 69 Year
  Sex: Male
  Weight: 80 kg

DRUGS (8)
  1. JANUMET [Suspect]
     Active Substance: METFORMIN HYDROCHLORIDE\SITAGLIPTIN PHOSPHATE
     Indication: Diabetes mellitus
     Dosage: 1 TABLET (50/850 MG) IN THE MORNING ONCE DAILY
     Route: 048
     Dates: start: 2015, end: 20220818
  2. JANUMET XR [Suspect]
     Active Substance: METFORMIN HYDROCHLORIDE\SITAGLIPTIN PHOSPHATE
     Indication: Blood glucose increased
     Dosage: 1 TABLET (50/1000 MG ), DAILY
     Route: 048
     Dates: start: 20220730
  3. COZOPT [Concomitant]
     Indication: Glaucoma
     Dosage: 1 DROP ON EACH EYE TWICE DAILY
  4. ALPHAGAN P [Concomitant]
     Active Substance: BRIMONIDINE TARTRATE
     Indication: Glaucoma
     Dosage: 2 DROPS ON EACH EYE ONCE DAILY
  5. LUMIGAN [Concomitant]
     Active Substance: BIMATOPROST
     Indication: Glaucoma
     Dosage: 1 DROP ON EACH EYE ONCE DAILY
  6. VITAMIN B12 [Concomitant]
     Active Substance: CYANOCOBALAMIN
     Indication: Asthenia
     Dosage: ONCE WEEKLY
  7. VITAMIN D NOS [Concomitant]
     Active Substance: VITAMIN D NOS
     Indication: Asthenia
     Dosage: 7000 IU ONCE WEEKLY
  8. DEXAMETHASONE SODIUM PHOSPHATE\MOXIFLOXACIN HYDROCHLORIDE [Concomitant]
     Active Substance: DEXAMETHASONE SODIUM PHOSPHATE\MOXIFLOXACIN HYDROCHLORIDE
     Indication: Antibiotic therapy
     Dosage: 1 DROP EVERY 2 HOURS ON THE RIGHT EYE, BETWEEN 06H00 AM AND 12H00 AM

REACTIONS (5)
  - Glaucoma [Unknown]
  - Drug ineffective [Unknown]
  - Blood glucose increased [Unknown]
  - Incorrect dose administered [Unknown]
  - Incorrect dose administered [Unknown]

NARRATIVE: CASE EVENT DATE: 20150101
